FAERS Safety Report 17092749 (Version 1)
Quarter: 2019Q4

REPORT INFORMATION
  Report Type: Spontaneous
  Country: US (occurrence: US)
  Receive Date: 20191129
  Receipt Date: 20191129
  Transmission Date: 20200122
  Serious: No
  Sender: FDA-Public Use
  Company Number: US-ASTRAZENECA-2019SF65111

PATIENT
  Sex: Female

DRUGS (2)
  1. DALIRESP [Suspect]
     Active Substance: ROFLUMILAST
     Dosage: 500 DOSE
     Route: 048
  2. DALIRESP [Suspect]
     Active Substance: ROFLUMILAST
     Dosage: 250 DOSE
     Route: 048

REACTIONS (1)
  - Crying [Recovered/Resolved]
